FAERS Safety Report 10648123 (Version 1)
Quarter: 2014Q4

REPORT INFORMATION
  Report Type: Spontaneous
  Country: US (occurrence: US)
  Receive Date: 20141212
  Receipt Date: 20141212
  Transmission Date: 20150529
  Serious: No
  Sender: FDA-Public Use
  Company Number: US-BAYER-2014-183279

PATIENT
  Age: 22 Year
  Sex: Female

DRUGS (1)
  1. SKYLA [Suspect]
     Active Substance: LEVONORGESTREL
     Indication: CONTRACEPTION
     Dosage: 14 MCG/24HR, CONT
     Route: 015
     Dates: start: 20141210

REACTIONS (4)
  - Abdominal pain lower [Not Recovered/Not Resolved]
  - Abdominal distension [None]
  - Abdominal discomfort [None]
  - Procedural pain [None]

NARRATIVE: CASE EVENT DATE: 20141210
